FAERS Safety Report 11287653 (Version 1)
Quarter: 2015Q3

REPORT INFORMATION
  Report Type: Spontaneous
  Country: US (occurrence: None)
  Receive Date: 20150720
  Receipt Date: 20150720
  Transmission Date: 20151125
  Serious: No
  Sender: FDA-Public Use
  Company Number: None

PATIENT
  Age: 65 Year
  Sex: Female
  Weight: 64.41 kg

DRUGS (2)
  1. CLOBETASOL [Concomitant]
     Active Substance: CLOBETASOL
  2. PICATO [Suspect]
     Active Substance: INGENOL MEBUTATE
     Indication: ACTINIC KERATOSIS
     Dosage: 1 DAB DAILY ONCE DAILY APPLIED TO A SURFACE, USUALLY THE SKIN
     Route: 058

REACTIONS (3)
  - Intercepted drug administration error [None]
  - Drug dispensing error [None]
  - Headache [None]

NARRATIVE: CASE EVENT DATE: 20150706
